FAERS Safety Report 8007084-2 (Version None)
Quarter: 2011Q4

REPORT INFORMATION
  Report Type: 
  Country: None (occurrence: None)
  Receive Date: 20111227
  Receipt Date: 20111215
  Transmission Date: 20120403
  Serious: No
  Sender: FDA-Public Use
  Company Number: AR-AMGEN-ARGSP2011058053

PATIENT
  Age: 51 Year
  Sex: Female

DRUGS (3)
  1. IRON [Concomitant]
     Dosage: UNK
  2. ROSUVASTATIN [Concomitant]
     Dosage: UNK
  3. ENBREL [Suspect]
     Indication: PSORIASIS
     Dosage: 50 MG, WEEKLY
     Route: 058
     Dates: start: 20090604, end: 20110601

REACTIONS (3)
  - MAMMOPLASTY [None]
  - PSORIASIS [None]
  - PLASTIC SURGERY TO THE FACE [None]
